FAERS Safety Report 5132266-7 (Version None)
Quarter: 2006Q4

REPORT INFORMATION
  Report Type: 
  Country: None (occurrence: None)
  Receive Date: 20061017
  Receipt Date: 20060928
  Transmission Date: 20070319
  Serious: Yes (Other)
  Sender: FDA-Public Use
  Company Number: 2006SP003320

PATIENT
  Age: 57 Year
  Sex: Female

DRUGS (3)
  1. TEMODAR [Suspect]
     Indication: BRAIN NEOPLASM
     Dosage: 145 MG QD PO ; 75 MG/M2 QD PO
     Route: 048
  2. CEFUROXIME [Suspect]
     Indication: SINUSITIS
  3. RADIATION [Concomitant]

REACTIONS (2)
  - APLASTIC ANAEMIA [None]
  - SINUSITIS [None]
